FAERS Safety Report 6539396-3 (Version None)
Quarter: 2010Q1

REPORT INFORMATION
  Report Type: 
  Country: None (occurrence: None)
  Receive Date: 20100111
  Receipt Date: 20091228
  Transmission Date: 20100710
  Serious: Yes (Hospitalization)
  Sender: FDA-Public Use
  Company Number: TRP_05908_2008

PATIENT
  Sex: Female
  Weight: 56.6996 kg

DRUGS (2)
  1. INFERGEN [Suspect]
     Indication: HEPATITIS C
     Dosage: 15 UG QD, WITHOUT MEDICATION 15 TO 16 DAYS PLUS APPROXIMATELY WEEK, SUBCUTANEOUS
     Route: 058
     Dates: start: 20080917, end: 20090101
  2. RIBAPAK (NOT SPECIFIED) [Suspect]
     Indication: HEPATITIS C
     Dosage: 1000 MG, 600 MG QAM AND 400 MG QPM, WITHOUT MEDICATION 15 OR 16 DAYS PLUS APPROXIMATELY 1 WEEK, ORAL
     Route: 048
     Dates: start: 20080917, end: 20090101

REACTIONS (6)
  - HEPATITIS C [None]
  - KIDNEY INFECTION [None]
  - PRURITUS [None]
  - RED BLOOD CELL COUNT DECREASED [None]
  - TREATMENT NONCOMPLIANCE [None]
  - WHITE BLOOD CELL COUNT DECREASED [None]
